FAERS Safety Report 18668888 (Version 1)
Quarter: 2020Q4

REPORT INFORMATION
  Report Type: Spontaneous
  Country: US (occurrence: US)
  Receive Date: 20201224
  Receipt Date: 20201224
  Transmission Date: 20210114
  Serious: No
  Sender: FDA-Public Use
  Company Number: None

PATIENT
  Age: 35 Year
  Sex: Female
  Weight: 48.08 kg

DRUGS (1)
  1. BUPRENORPHINE -NALOXONE 8-2 FILM [Suspect]
     Active Substance: BUPRENORPHINE\NALOXONE
     Indication: DRUG DEPENDENCE
     Dosage: ?          OTHER DOSE:8/2MG FILM;?
     Route: 060

REACTIONS (1)
  - Nausea [None]

NARRATIVE: CASE EVENT DATE: 20201218
